FAERS Safety Report 9215947 (Version 1)
Quarter: 2013Q2

REPORT INFORMATION
  Report Type: Report from Study
  Country: JP (occurrence: JP)
  Receive Date: 20130408
  Receipt Date: 20130408
  Transmission Date: 20140414
  Serious: Yes (Death, Life-Threatening, Hospitalization, Other)
  Sender: FDA-Public Use
  Company Number: JP-GENZYME-THYM-1003729

PATIENT
  Age: 12 Year
  Sex: Male
  Weight: 35 kg

DRUGS (66)
  1. THYMOGLOBULIN [Suspect]
     Indication: BONE MARROW CONDITIONING REGIMEN
     Dosage: 42 MG, QD
     Route: 065
     Dates: start: 20091130, end: 20091201
  2. CONCENTRATED HUMAN PLATELETS (IRRADIATED) [Concomitant]
     Indication: ACUTE LYMPHOCYTIC LEUKAEMIA
     Dosage: UNK
     Route: 065
     Dates: start: 20091129, end: 20091129
  3. CONCENTRATED HUMAN PLATELETS (IRRADIATED) [Concomitant]
     Dosage: UNK
     Route: 065
     Dates: start: 20091203, end: 20091203
  4. CONCENTRATED HUMAN PLATELETS (IRRADIATED) [Concomitant]
     Dosage: UNK
     Route: 065
     Dates: start: 20091205, end: 20091206
  5. CONCENTRATED HUMAN PLATELETS (IRRADIATED) [Concomitant]
     Dosage: UNK
     Route: 065
     Dates: start: 20091208, end: 20091210
  6. CONCENTRATED HUMAN PLATELETS (IRRADIATED) [Concomitant]
     Dosage: UNK
     Route: 065
     Dates: start: 20091212, end: 20091222
  7. CONCENTRATED HUMAN PLATELETS (IRRADIATED) [Concomitant]
     Dosage: UNK
     Route: 065
     Dates: start: 20091226, end: 20091226
  8. CONCENTRATED HUMAN PLATELETS (IRRADIATED) [Concomitant]
     Dosage: UNK
     Route: 065
     Dates: start: 20091229, end: 20091229
  9. HUMAN RED BLOOD CELLS [Concomitant]
     Indication: ACUTE LYMPHOCYTIC LEUKAEMIA
     Dosage: UNK
     Route: 065
     Dates: start: 20091202, end: 20091202
  10. HUMAN RED BLOOD CELLS [Concomitant]
     Dosage: UNK
     Route: 065
     Dates: start: 20091206, end: 20091206
  11. HUMAN RED BLOOD CELLS [Concomitant]
     Dosage: UNK
     Route: 065
     Dates: start: 20091211, end: 20091211
  12. MITOXANTRONE HYDROCHLORIDE [Concomitant]
     Indication: ACUTE LYMPHOCYTIC LEUKAEMIA
     Dosage: UNK
     Route: 065
     Dates: start: 20090812, end: 20090814
  13. CYTARABINE [Concomitant]
     Indication: ACUTE LYMPHOCYTIC LEUKAEMIA
     Dosage: UNK
     Route: 065
     Dates: start: 20090812, end: 20090821
  14. CYTARABINE [Concomitant]
     Dosage: UNK
     Route: 065
     Dates: start: 20090929, end: 20090929
  15. CYTARABINE [Concomitant]
     Dosage: UNK
     Route: 065
     Dates: start: 20090930, end: 20091008
  16. PREDNISOLONE SODIUM SUCCINATE [Concomitant]
     Indication: ACUTE LYMPHOCYTIC LEUKAEMIA
     Dosage: UNK
     Route: 065
     Dates: start: 20090929, end: 20091008
  17. PREDNISOLONE SODIUM SUCCINATE [Concomitant]
     Indication: PROPHYLAXIS AGAINST GRAFT VERSUS HOST DISEASE
     Dosage: UNK
     Route: 065
     Dates: start: 20091202, end: 20100112
  18. ETOPOSIDE [Concomitant]
     Indication: ACUTE LYMPHOCYTIC LEUKAEMIA
     Dosage: UNK
     Route: 065
     Dates: start: 20090819, end: 20090821
  19. ETOPOSIDE [Concomitant]
     Dosage: UNK
     Route: 065
     Dates: start: 20091006, end: 20091008
  20. TACROLIMUS [Concomitant]
     Indication: PROPHYLAXIS AGAINST GRAFT VERSUS HOST DISEASE
     Dosage: UNK
     Route: 065
     Dates: start: 20090909, end: 20091130
  21. TACROLIMUS [Concomitant]
     Dosage: UNK
     Route: 065
     Dates: start: 20091201, end: 20100423
  22. PREDNISOLONE [Concomitant]
     Indication: PROPHYLAXIS AGAINST GRAFT VERSUS HOST DISEASE
     Dosage: UNK
     Route: 065
     Dates: start: 20090918, end: 20091129
  23. PREDNISOLONE [Concomitant]
     Dosage: UNK
     Route: 065
     Dates: start: 20100113
  24. PREDNISOLONE [Concomitant]
     Dosage: UNK
     Route: 065
     Dates: start: 20100210
  25. METHOTREXATE [Concomitant]
     Indication: ACUTE LYMPHOCYTIC LEUKAEMIA
     Dosage: UNK
     Route: 065
     Dates: start: 20090929, end: 20090929
  26. METHOTREXATE [Concomitant]
     Dosage: UNK
     Route: 065
     Dates: start: 20091205, end: 20091205
  27. METHOTREXATE [Concomitant]
     Dosage: UNK
     Route: 065
     Dates: start: 20091208, end: 20091208
  28. GRANISETRON HYDROCHLORIDE [Concomitant]
     Indication: PROPHYLAXIS OF NAUSEA AND VOMITING
     Dosage: UNK
     Route: 065
     Dates: start: 20091124, end: 20091206
  29. MICAFUNGIN SODIUM [Concomitant]
     Indication: INFECTION PROPHYLAXIS
     Dosage: UNK
     Route: 065
     Dates: start: 20091124, end: 20100103
  30. CAMOSTAT MESILATE [Concomitant]
     Indication: PROPHYLAXIS
     Dosage: UNK
     Route: 065
     Dates: start: 20091124
  31. FLUDARABINE PHOSPHATE [Concomitant]
     Indication: BONE MARROW CONDITIONING REGIMEN
     Dosage: UNK
     Route: 065
     Dates: start: 20091126, end: 20091130
  32. VANCOMYCIN HYDROCHLORIDE [Concomitant]
     Indication: INFECTION PROPHYLAXIS
     Dosage: UNK
     Route: 065
     Dates: start: 20091124, end: 20091218
  33. BUSULFAN [Concomitant]
     Indication: BONE MARROW CONDITIONING REGIMEN
     Dosage: UNK
     Route: 065
     Dates: start: 20091124, end: 20091126
  34. CARPRONIUM CHLORIDE [Concomitant]
     Indication: PROPHYLAXIS
     Dosage: UNK
     Route: 065
     Dates: start: 20091215, end: 20100319
  35. HYDROCORTISONE SODIUM SUCCINATE [Concomitant]
     Indication: ACUTE LYMPHOCYTIC LEUKAEMIA
     Dosage: UNK
     Route: 065
     Dates: start: 20090929, end: 20090929
  36. SULFAMETHOPRIM [Concomitant]
     Indication: INFECTION PROPHYLAXIS
     Dosage: UNK
     Route: 065
     Dates: start: 20091215
  37. SODIUM BICARBONATE [Concomitant]
     Indication: PROPHYLAXIS
     Dosage: UNK
     Route: 065
     Dates: start: 20091124, end: 20091202
  38. PIPERACILLIN SODIUM [Concomitant]
     Indication: INFECTION PROPHYLAXIS
     Dosage: UNK
     Route: 065
     Dates: start: 20091124, end: 20091130
  39. FAMOTIDINE [Concomitant]
     Indication: PROPHYLAXIS
     Dosage: UNK
     Route: 065
     Dates: start: 20091124, end: 20091221
  40. FAMOTIDINE [Concomitant]
     Indication: GASTRITIS PROPHYLAXIS
     Dosage: UNK
     Route: 065
     Dates: start: 20091221, end: 20100502
  41. FAMOTIDINE [Concomitant]
     Indication: PROPHYLAXIS
  42. LEVOFLOXACIN [Concomitant]
     Indication: INFECTION PROPHYLAXIS
     Dosage: UNK
     Route: 065
     Dates: start: 20100127
  43. DANTROLENE SODIUM [Concomitant]
     Indication: MUSCLE SPASMS
     Dosage: UNK
     Route: 065
     Dates: start: 20091124, end: 20091201
  44. DANTROLENE SODIUM [Concomitant]
     Dosage: UNK
     Route: 065
     Dates: start: 20100131, end: 20100222
  45. FLUCONAZOLE [Concomitant]
     Indication: INFECTION PROPHYLAXIS
     Dosage: UNK
     Route: 065
     Dates: start: 20100104, end: 20100420
  46. ETHYL ICOSAPENTATE [Concomitant]
     Indication: PROPHYLAXIS
     Dosage: UNK
     Route: 065
     Dates: start: 20091124, end: 20100508
  47. DALTEPARIN SODIUM [Concomitant]
     Indication: THROMBOSIS PROPHYLAXIS
     Dosage: UNK
     Route: 065
     Dates: start: 20091124, end: 20100104
  48. VORICONAZOLE [Concomitant]
     Indication: INFECTION PROPHYLAXIS
     Dosage: UNK
     Route: 065
     Dates: start: 20100427
  49. LOPERAMIDE HYDROCHLORIDE [Concomitant]
     Indication: DIARRHOEA
     Dosage: UNK
     Route: 065
     Dates: start: 20091124, end: 20100517
  50. ACETAZOLAMIDE SODIUM [Concomitant]
     Indication: PROPHYLAXIS
     Dosage: UNK
     Route: 065
     Dates: start: 20091124, end: 20091201
  51. GLUTATHIONE [Concomitant]
     Indication: PROPHYLAXIS
     Dosage: UNK
     Route: 065
     Dates: start: 20091124, end: 20100205
  52. MELPHALAN [Concomitant]
     Indication: BONE MARROW CONDITIONING REGIMEN
     Dosage: UNK
     Route: 065
     Dates: start: 20091130, end: 20091130
  53. NEO-MINOPHAGEN C [Concomitant]
     Indication: PROPHYLAXIS
     Dosage: UNK
     Route: 065
     Dates: start: 20091124, end: 20100205
  54. TEPRENONE [Concomitant]
     Indication: PROPHYLAXIS
     Dosage: UNK
     Route: 065
     Dates: start: 20091211, end: 20100524
  55. URSODEOXYCHOLIC ACID [Concomitant]
     Indication: PROPHYLAXIS
     Dosage: UNK
     Route: 065
     Dates: start: 20091124, end: 20100508
  56. CEFTAZIDIME [Concomitant]
     Indication: BONE MARROW CONDITIONING REGIMEN
     Dosage: UNK
     Route: 065
     Dates: start: 20091130, end: 20091211
  57. SODIUM ALGINATE [Concomitant]
     Indication: PROPHYLAXIS
     Dosage: UNK
     Route: 065
     Dates: start: 20091124, end: 20091212
  58. POLYMYXIN B SULFATE [Concomitant]
     Indication: INFECTION PROPHYLAXIS
     Dosage: UNK
     Route: 065
     Dates: start: 20091124, end: 20091218
  59. POLAPREZINC [Concomitant]
     Indication: PROPHYLAXIS
     Dosage: UNK
     Route: 065
     Dates: start: 20091124, end: 20091212
  60. UBIDECARENONE [Concomitant]
     Indication: CARDIOVASCULAR EVENT PROPHYLAXIS
     Dosage: UNK
     Route: 065
     Dates: start: 20091124
  61. MINOCYCLINE HYDROCHLORIDE [Concomitant]
     Indication: INFECTION PROPHYLAXIS
     Dosage: UNK
     Route: 065
     Dates: start: 20100401, end: 20100408
  62. HYDROXYZINE HYDROCHLORIDE [Concomitant]
     Indication: PREMEDICATION
     Dosage: UNK
     Route: 065
     Dates: start: 20091130, end: 20091201
  63. CEFOZOPRAN HYDROCHLORIDE [Concomitant]
     Indication: INFECTION PROPHYLAXIS
     Dosage: UNK
     Route: 065
     Dates: start: 20100420, end: 20100426
  64. ACICLOVIR [Concomitant]
     Indication: INFECTION PROPHYLAXIS
     Dosage: UNK
     Route: 065
     Dates: start: 20091204, end: 20091224
  65. ACICLOVIR [Concomitant]
     Dosage: UNK
     Route: 065
     Dates: start: 20091224, end: 20100106
  66. METHYLPREDNISOLONE SODIUM SUCCINATE [Concomitant]
     Indication: PREMEDICATION
     Dosage: UNK
     Route: 065
     Dates: start: 20091130, end: 20091201

REACTIONS (25)
  - Pulmonary haemorrhage [Unknown]
  - Disseminated intravascular coagulation [Unknown]
  - Renal failure [Unknown]
  - Posterior reversible encephalopathy syndrome [Unknown]
  - Pancreatitis acute [Unknown]
  - Gastrointestinal perforation [Unknown]
  - Ulcer [Unknown]
  - Post transplant lymphoproliferative disorder [Fatal]
  - Febrile neutropenia [Recovered/Resolved]
  - Cytomegalovirus viraemia [Recovered/Resolved]
  - Bronchopulmonary aspergillosis [Recovered/Resolved]
  - Fungal infection [Unknown]
  - Ascites [Unknown]
  - Renal impairment [Recovered/Resolved]
  - Chronic graft versus host disease [Recovered/Resolved]
  - Stomatitis [Recovered/Resolved]
  - Back pain [Recovered/Resolved]
  - Duodenitis [Recovered/Resolved]
  - Hepatic function abnormal [Recovered/Resolved]
  - Anaemia [Recovered/Resolved]
  - Abdominal pain [Recovered/Resolved]
  - Abdominal pain upper [Recovered/Resolved]
  - Hypertension [Recovered/Resolved]
  - Diarrhoea [Recovered/Resolved]
  - Headache [Recovered/Resolved]
